FAERS Safety Report 16671830 (Version 1)
Quarter: 2020Q3

REPORT INFORMATION
  Report Type: Spontaneous
  Country: DE (occurrence: DE)
  Receive Date: 20190806
  Receipt Date: 20190806
  Transmission Date: 20201104
  Serious: Yes (Other)
  Sender: FDA-Public Use
  Company Number: DE-AUROBINDO-AUR-APL-2019-045252

PATIENT

DRUGS (4)
  1. GRANISETRON [Suspect]
     Active Substance: GRANISETRON
     Indication: NAUSEA
     Dosage: 2 MILLIGRAM, ONCE A DAY
     Route: 048
     Dates: start: 20190624, end: 20190628
  2. IDASANUTLIN. [Suspect]
     Active Substance: IDASANUTLIN
     Indication: GLIOBLASTOMA
     Dosage: AT ESCALATING DOSES FROM 100 MG UNTIL MAXIMUM TOLERATED DOSE ON FIVE CONSECUTIVE DAYS OF A 28?DAY CY
     Route: 048
     Dates: start: 20190527
  3. PASPERTIN [METOCLOPRAMIDE HYDROCHLORIDE] [Suspect]
     Active Substance: METOCLOPRAMIDE HYDROCHLORIDE
     Indication: NAUSEA
     Dosage: 10?20 MG
     Route: 048
     Dates: start: 20190624, end: 20190628
  4. VOMEX A [Suspect]
     Active Substance: DIMENHYDRINATE
     Indication: NAUSEA
     Dosage: 150 MILLIGRAM
     Route: 054
     Dates: start: 20190624, end: 20190628

REACTIONS (2)
  - Neutropenia [Unknown]
  - Leukopenia [Unknown]

NARRATIVE: CASE EVENT DATE: 20190704
